FAERS Safety Report 8174348-1 (Version None)
Quarter: 2012Q1

REPORT INFORMATION
  Report Type: 
  Country: None (occurrence: None)
  Receive Date: 20120229
  Receipt Date: 20120221
  Transmission Date: 20120608
  Serious: Yes (Other)
  Sender: FDA-Public Use
  Company Number: US-SANOFI-AVENTIS-2012SA011666

PATIENT
  Age: 71 Year
  Sex: Female

DRUGS (2)
  1. PLAVIX [Suspect]
     Dates: start: 20040101
  2. ASPIRIN [Concomitant]

REACTIONS (4)
  - VASCULAR OCCLUSION [None]
  - CONTUSION [None]
  - CHROMATURIA [None]
  - URINARY INCONTINENCE [None]
